FAERS Safety Report 12801845 (Version 9)
Quarter: 2017Q1

REPORT INFORMATION
  Report Type: Spontaneous
  Country: TR (occurrence: TR)
  Receive Date: 20161003
  Receipt Date: 20170228
  Transmission Date: 20170428
  Serious: Yes (Life-Threatening, Hospitalization, Other)
  Sender: FDA-Public Use
  Company Number: PHHY2016TR135398

PATIENT
  Age: 33 Year
  Sex: Female
  Weight: 65 kg

DRUGS (1)
  1. FINGYA [Suspect]
     Active Substance: FINGOLIMOD
     Indication: MULTIPLE SCLEROSIS
     Dosage: 0.5 MG, QD
     Route: 065
     Dates: start: 20160822, end: 201609

REACTIONS (22)
  - Abdominal pain [Unknown]
  - Bile duct obstruction [Unknown]
  - Dyspepsia [Unknown]
  - Hepatitis toxic [Recovered/Resolved with Sequelae]
  - Asthenia [Unknown]
  - Hepatic enzyme increased [Not Recovered/Not Resolved]
  - Blood bilirubin increased [Recovering/Resolving]
  - Arthralgia [Unknown]
  - Ocular icterus [Unknown]
  - Chromaturia [Unknown]
  - Vomiting [Unknown]
  - Jaundice [Unknown]
  - Malaise [Unknown]
  - Decreased appetite [Unknown]
  - Hepatic failure [Recovered/Resolved with Sequelae]
  - Abdominal pain upper [Unknown]
  - Transaminases increased [Unknown]
  - Fatigue [Unknown]
  - Nausea [Unknown]
  - Thyroiditis [Unknown]
  - Blood lactate dehydrogenase increased [Unknown]
  - Loss of consciousness [Unknown]

NARRATIVE: CASE EVENT DATE: 20160901
